FAERS Safety Report 4855703-1 (Version None)
Quarter: 2005Q4

REPORT INFORMATION
  Report Type: 
  Country: None (occurrence: None)
  Receive Date: 20051216
  Receipt Date: 20051207
  Transmission Date: 20060501
  Serious: Yes (Other)
  Sender: FDA-Public Use
  Company Number: CA-ROCHE-427620

PATIENT
  Age: 22 Year
  Sex: Male
  Weight: 100 kg

DRUGS (6)
  1. LARIAM [Suspect]
     Indication: DRUG USE FOR UNKNOWN INDICATION
     Route: 065
  2. HEPATITIS A VACCINE [Concomitant]
  3. HEPATITIS B VACCINE [Concomitant]
  4. TYPHOID VACCINE [Concomitant]
     Route: 048
  5. DIPHTHERIA AND TETANUS VACCINE [Concomitant]
  6. MALARONE [Concomitant]

REACTIONS (12)
  - CHEST PAIN [None]
  - DIZZINESS [None]
  - FATIGUE [None]
  - HYPERTENSION [None]
  - HYPOAESTHESIA [None]
  - INSOMNIA [None]
  - MALAISE [None]
  - NAUSEA [None]
  - PALPITATIONS [None]
  - PARAESTHESIA [None]
  - TINNITUS [None]
  - UPPER RESPIRATORY TRACT INFECTION [None]
